FAERS Safety Report 8476431-X (Version None)
Quarter: 2012Q2

REPORT INFORMATION
  Report Type: 
  Country: None (occurrence: None)
  Receive Date: 20120628
  Receipt Date: 20120618
  Transmission Date: 20120825
  Serious: Yes (Hospitalization)
  Sender: FDA-Public Use
  Company Number: US-PFIZER INC-2012146710

PATIENT
  Sex: Female
  Weight: 74.4 kg

DRUGS (15)
  1. IRINOTECAN HCL [Suspect]
     Indication: COLORECTAL CANCER METASTATIC
     Dosage: 180 MG/M2, ON DAY 1 EVERY 14 DAYS, CYCLIC
     Route: 042
     Dates: start: 20120326, end: 20120418
  2. OXYGEN [Concomitant]
  3. BLINDED THERAPY [Suspect]
     Indication: COLORECTAL CANCER METASTATIC
     Dosage: UNK
     Route: 042
     Dates: start: 20120326, end: 20120418
  4. OXYCONTIN [Concomitant]
  5. LEUCOVORIN CALCIUM [Suspect]
     Indication: COLORECTAL CANCER METASTATIC
     Dosage: 400 MG/M2, ON DAY 1 EVERY 14 DAYS, CYCLIC
     Route: 042
     Dates: start: 20120326, end: 20120418
  6. FLUOROURACIL [Suspect]
     Indication: COLORECTAL CANCER METASTATIC
     Dosage: 400 MG/M2, ON DAY 1 EVERY 14 DAYS, CYCLIC
     Route: 040
     Dates: start: 20120326, end: 20120418
  7. FLUOROURACIL [Suspect]
     Dosage: 2400 MG/M2, ON DAYS 1 AND 2 EVERY 14 DAYS, CYCLIC
     Route: 042
     Dates: start: 20120326
  8. DEXAMETHASONE [Concomitant]
  9. OXYCODONE [Concomitant]
  10. COMPAZINE [Concomitant]
  11. MARIJUANA [Concomitant]
  12. ERGOCALCIFEROL [Concomitant]
  13. BENADRYL [Concomitant]
  14. COLACE [Concomitant]
  15. BENZONATATE [Concomitant]

REACTIONS (2)
  - PNEUMOTHORAX TRAUMATIC [None]
  - DYSPNOEA [None]
